FAERS Safety Report 7957225-8 (Version None)
Quarter: 2011Q4

REPORT INFORMATION
  Report Type: 
  Country: None (occurrence: None)
  Receive Date: 20111205
  Receipt Date: 20111129
  Transmission Date: 20120403
  Serious: Yes (Life-Threatening, Disabling)
  Sender: FDA-Public Use
  Company Number: US-CELGENEUS-163-20785-11100961

PATIENT
  Sex: Male

DRUGS (6)
  1. THALOMID [Suspect]
     Dosage: 50 MILLIGRAM
     Route: 048
     Dates: start: 20110407, end: 20111012
  2. NEURONTIN [Concomitant]
     Route: 065
  3. LORTAB [Concomitant]
     Dosage: 10
     Route: 065
  4. REVLIMID [Suspect]
     Route: 065
  5. LISINOPRIL [Concomitant]
     Route: 065
  6. THALOMID [Suspect]
     Dosage: 100 MILLIGRAM
     Route: 048
     Dates: start: 20101105

REACTIONS (1)
  - MULTIPLE MYELOMA [None]
